FAERS Safety Report 5876963-4 (Version None)
Quarter: 2008Q3

REPORT INFORMATION
  Report Type: 
  Country: None (occurrence: None)
  Receive Date: 20080909
  Receipt Date: 20080909
  Transmission Date: 20090109
  Serious: No
  Sender: FDA-Public Use
  Company Number: None

PATIENT
  Sex: Female

DRUGS (6)
  1. DIGOXIN [Suspect]
     Indication: CARDIAC FAILURE CONGESTIVE
     Dosage: 0.125MG DAILY PO
     Route: 048
  2. FLCAINIDE [Concomitant]
  3. GLIPIZIDE [Concomitant]
  4. ATARAX IMDUR [Concomitant]
  5. TEKTURNA [Concomitant]
  6. ONCOVITE [Concomitant]

REACTIONS (3)
  - ASTHENIA [None]
  - DIARRHOEA [None]
  - MUSCLE SPASMS [None]
